FAERS Safety Report 15104831 (Version 3)
Quarter: 2018Q3

REPORT INFORMATION
  Report Type: Spontaneous
  Country: DE (occurrence: DE)
  Receive Date: 20180703
  Receipt Date: 20180716
  Transmission Date: 20181010
  Serious: Yes (Hospitalization, Other)
  Sender: FDA-Public Use
  Company Number: DE-ALLERGAN-1647006

PATIENT
  Age: 48 Year
  Sex: Male

DRUGS (5)
  1. CALCIUM [Suspect]
     Active Substance: CALCIUM
     Indication: OSTEOPOROSIS
     Route: 065
  2. TRIPTORELIN PAMOATE UNK [Suspect]
     Active Substance: TRIPTORELIN PAMOATE
     Indication: PARAPHILIA
     Dosage: 11.25 MG, ONCE EVERY 3 MONTHS
     Route: 030
     Dates: start: 2011
  3. ANDROCUR [Suspect]
     Active Substance: CYPROTERONE ACETATE
     Indication: PARAPHILIA
     Dosage: 300 MG, Q2WEEKS
     Route: 065
     Dates: start: 2000, end: 2002
  4. TRENANTONE [Suspect]
     Active Substance: LEUPROLIDE ACETATE
     Indication: PARAPHILIA
     Dosage: UNK
     Route: 065
     Dates: start: 2002, end: 2011
  5. COLECALCIFEROL [Suspect]
     Active Substance: CHOLECALCIFEROL
     Indication: OSTEOPOROSIS
     Route: 065

REACTIONS (3)
  - Off label use [Unknown]
  - Osteoporosis [Unknown]
  - Calculus urinary [Recovered/Resolved]

NARRATIVE: CASE EVENT DATE: 2011
